FAERS Safety Report 19889419 (Version 1)
Quarter: 2021Q3

REPORT INFORMATION
  Report Type: Spontaneous
  Country: US (occurrence: US)
  Receive Date: 20210928
  Receipt Date: 20210928
  Transmission Date: 20211014
  Serious: Yes (Death, Hospitalization)
  Sender: FDA-Public Use
  Company Number: None

PATIENT
  Age: 84 Year
  Sex: Female
  Weight: 50.9 kg

DRUGS (3)
  1. SITAGLIPTIN 100 MG 1 TAB PO DAILY [Concomitant]
  2. JARDIANCE [Suspect]
     Active Substance: EMPAGLIFLOZIN
     Indication: TYPE 2 DIABETES MELLITUS
     Route: 048
     Dates: start: 20210617, end: 20210818
  3. LANTUS 28 UNITS SUBQ DAILY [Concomitant]

REACTIONS (9)
  - Metabolic acidosis [None]
  - Blood bicarbonate decreased [None]
  - Blood lactic acid decreased [None]
  - Albumin globulin ratio increased [None]
  - Starvation ketoacidosis [None]
  - Blood glucose increased [None]
  - Hypophagia [None]
  - Urine output increased [None]
  - White blood cell count increased [None]

NARRATIVE: CASE EVENT DATE: 20210824
